FAERS Safety Report 4306626-8 (Version None)
Quarter: 2004Q1

REPORT INFORMATION
  Report Type: 
  Country: None (occurrence: None)
  Receive Date: 20040225
  Receipt Date: 20031007
  Transmission Date: 20041129
  Serious: No
  Sender: FDA-Public Use
  Company Number: US-BRISTOL-MYERS SQUIBB COMPANY-12426185

PATIENT
  Sex: Female

DRUGS (1)
  1. EXCEDRIN [Suspect]
     Indication: MIGRAINE
     Dosage: DOSING: 10-12 A DAY

REACTIONS (3)
  - MEDICATION ERROR [None]
  - OVERDOSE [None]
  - ULCER HAEMORRHAGE [None]
